FAERS Safety Report 6394565-0 (Version None)
Quarter: 2009Q4

REPORT INFORMATION
  Report Type: 
  Country: None (occurrence: None)
  Receive Date: 20091009
  Receipt Date: 20091001
  Transmission Date: 20100525
  Serious: Yes (Other)
  Sender: FDA-Public Use
  Company Number: SK-BAXTER-2009BH015052

PATIENT
  Age: 10 Year
  Sex: Female
  Weight: 29 kg

DRUGS (1)
  1. GAMMAGARD LIQUID [Suspect]
     Indication: HYPOGAMMAGLOBULINAEMIA
     Route: 042
     Dates: start: 20080414, end: 20080414

REACTIONS (6)
  - ANAPHYLACTOID REACTION [None]
  - COUGH [None]
  - DYSPNOEA [None]
  - NAUSEA [None]
  - RASH [None]
  - VOMITING [None]
